FAERS Safety Report 18847011 (Version 2)
Quarter: 2021Q1

REPORT INFORMATION
  Report Type: Report from Study
  Country: None (occurrence: US)
  Receive Date: 20210204
  Receipt Date: 20210322
  Transmission Date: 20210419
  Serious: No
  Sender: FDA-Public Use
  Company Number: US-BIOVITRUM-2021US1038

PATIENT
  Age: 5 Month
  Sex: Female

DRUGS (2)
  1. BUDESONIDE. [Concomitant]
     Active Substance: BUDESONIDE
  2. SYNAGIS [Suspect]
     Active Substance: PALIVIZUMAB
     Indication: FAILURE TO THRIVE
     Route: 030
     Dates: start: 20201231

REACTIONS (1)
  - Vomiting [Recovered/Resolved]

NARRATIVE: CASE EVENT DATE: 20210105
